FAERS Safety Report 9678260 (Version 3)
Quarter: 2014Q1

REPORT INFORMATION
  Report Type: Report from Study
  Country: US (occurrence: US)
  Receive Date: 20131108
  Receipt Date: 20140210
  Transmission Date: 20141002
  Serious: Yes (Hospitalization, Other)
  Sender: FDA-Public Use
  Company Number: US-ACTELION-A-NJ2013-90629

PATIENT
  Age: 55 Year
  Sex: Male

DRUGS (4)
  1. TRACLEER [Suspect]
     Indication: PULMONARY HYPERTENSION
     Dosage: 62.5 MG, UNK
     Route: 048
  2. TRACLEER [Suspect]
     Dosage: UNK
     Route: 048
     Dates: start: 20130917, end: 20131015
  3. TRACLEER [Suspect]
     Dosage: UNK
     Route: 048
     Dates: start: 20131016
  4. OXYGEN [Concomitant]

REACTIONS (9)
  - Haematemesis [Unknown]
  - Cardiac failure congestive [Unknown]
  - Oedema peripheral [Unknown]
  - Pulmonary thrombosis [Unknown]
  - Breath sounds abnormal [Unknown]
  - Haemoptysis [Unknown]
  - Dyspnoea [Unknown]
  - Fear [Unknown]
  - Nervousness [Unknown]
